FAERS Safety Report 5290900-5 (Version None)
Quarter: 2007Q2

REPORT INFORMATION
  Report Type: 
  Country: None (occurrence: None)
  Receive Date: 20070409
  Receipt Date: 20070326
  Transmission Date: 20071010
  Serious: Yes (Death, Hospitalization, Other)
  Sender: FDA-Public Use
  Company Number: GB-JNJFOC-20070306370

PATIENT
  Sex: Male

DRUGS (6)
  1. INFLIXIMAB [Suspect]
     Indication: RHEUMATOID ARTHRITIS
     Route: 042
  2. METHOTREXATE [Concomitant]
  3. PREDNISOLONE [Concomitant]
     Dosage: DOSE OCCASIONALLY INCREASED
  4. PREDNISOLONE [Concomitant]
  5. ZOPRELONE [Concomitant]
     Dosage: AT NIGHT
  6. FOLIC ACID [Concomitant]

REACTIONS (3)
  - FALL [None]
  - LOCALISED INFECTION [None]
  - SEPSIS [None]
